FAERS Safety Report 23226809 (Version 2)
Quarter: 2023Q4

REPORT INFORMATION
  Report Type: Report from Study
  Country: IE (occurrence: IE)
  Receive Date: 20231124
  Receipt Date: 20231215
  Transmission Date: 20240109
  Serious: Yes (Hospitalization, Other)
  Sender: FDA-Public Use
  Company Number: IE-AstraZeneca-2023A265254

PATIENT
  Age: 6 Month
  Sex: Female

DRUGS (2)
  1. SYNAGIS [Suspect]
     Active Substance: PALIVIZUMAB
     Indication: Premature baby
     Dosage: AFTER 28 DAYS
     Route: 030
     Dates: start: 20231019
  2. SYNAGIS [Suspect]
     Active Substance: PALIVIZUMAB
     Dosage: AFTER 28 DAYS
     Route: 030
     Dates: start: 20231207

REACTIONS (3)
  - Cerebral haemorrhage [Unknown]
  - Illness [Unknown]
  - Inappropriate schedule of product administration [Unknown]
